FAERS Safety Report 5682462-5 (Version None)
Quarter: 2008Q1

REPORT INFORMATION
  Report Type: 
  Country: None (occurrence: None)
  Receive Date: 20080327
  Receipt Date: 20080325
  Transmission Date: 20080703
  Serious: Yes (Disabling)
  Sender: FDA-Public Use
  Company Number: CH-BRISTOL-MYERS SQUIBB COMPANY-14125256

PATIENT
  Age: 60 Year
  Sex: Female
  Weight: 87 kg

DRUGS (4)
  1. KENACORT-A40 INJ [Suspect]
     Indication: OSTEOARTHRITIS
     Route: 014
     Dates: start: 20080204, end: 20080204
  2. CELEBREX [Concomitant]
     Indication: OSTEOARTHRITIS
     Route: 048
  3. ATACAND [Concomitant]
     Indication: ESSENTIAL HYPERTENSION
     Route: 048
  4. ATENOLOL [Concomitant]
     Indication: ESSENTIAL HYPERTENSION
     Route: 048

REACTIONS (1)
  - MYOSITIS [None]
